FAERS Safety Report 4616856-3 (Version None)
Quarter: 2005Q1

REPORT INFORMATION
  Report Type: 
  Country: None (occurrence: None)
  Receive Date: 20050321
  Receipt Date: 20050308
  Transmission Date: 20050727
  Serious: Yes (Hospitalization, Other)
  Sender: FDA-Public Use
  Company Number: 2005040678

PATIENT
  Age: 48 Year
  Sex: Female

DRUGS (3)
  1. CELEBREX [Suspect]
     Indication: MYALGIA
     Dosage: 200 MG (200 MG, 1 IN 1 D) ORAL
     Route: 048
     Dates: start: 20040301, end: 20040101
  2. PANTOPRAZOLE SODIUM [Concomitant]
  3. PARACETAMOL [Concomitant]

REACTIONS (4)
  - HEART RATE IRREGULAR [None]
  - HYSTERECTOMY [None]
  - OOPHORECTOMY [None]
  - ULCER [None]
